FAERS Safety Report 7096776-8 (Version None)
Quarter: 2010Q4

REPORT INFORMATION
  Report Type: 
  Country: None (occurrence: None)
  Receive Date: 20101111
  Receipt Date: 20091123
  Transmission Date: 20110411
  Serious: No
  Sender: FDA-Public Use
  Company Number: US-KINGPHARMUSA00001-K200901473

PATIENT
  Age: 31 Year
  Sex: Female
  Weight: 54.422 kg

DRUGS (2)
  1. FLECTOR [Suspect]
     Indication: MUSCULOSKELETAL PAIN
     Dosage: 1 PATCH, QD FOR 12 HOURS
     Route: 061
     Dates: start: 20091120
  2. BIRTH CONTROL PILL [Concomitant]
     Indication: ORAL CONTRACEPTION
     Dosage: UNK

REACTIONS (3)
  - APPLICATION SITE PRURITUS [None]
  - DRUG INEFFECTIVE [None]
  - PRURITUS [None]
